FAERS Safety Report 19053815 (Version 1)
Quarter: 2021Q1

REPORT INFORMATION
  Report Type: Report from Study
  Country: US (occurrence: US)
  Receive Date: 20210325
  Receipt Date: 20210325
  Transmission Date: 20210420
  Serious: Yes (Other)
  Sender: FDA-Public Use
  Company Number: US-CIPLA LTD.-2021US02349

PATIENT

DRUGS (2)
  1. AZACITIDINE. [Suspect]
     Active Substance: AZACITIDINE
     Indication: ACUTE MYELOID LEUKAEMIA
     Dosage: 75 MILLIGRAM/SQ. METER, ON DAYS 1?7 IN 28 CYCLE
     Route: 058
  2. IVOSIDENIB [Suspect]
     Active Substance: IVOSIDENIB
     Indication: ACUTE MYELOID LEUKAEMIA
     Dosage: 500 MILLIGRAM, QD, ON DAYS 1?7 IN 28?DAY CYCLES
     Route: 048

REACTIONS (2)
  - Acute myeloid leukaemia recurrent [Unknown]
  - Drug resistance [Unknown]
